FAERS Safety Report 4998311-4 (Version None)
Quarter: 2006Q2

REPORT INFORMATION
  Report Type: 
  Country: None (occurrence: None)
  Receive Date: 20060508
  Receipt Date: 20060424
  Transmission Date: 20061013
  Serious: Yes (Hospitalization, Other)
  Sender: FDA-Public Use
  Company Number: 2006US-02141

PATIENT
  Age: 72 Year
  Sex: Male

DRUGS (1)
  1. FLECAINIDE ACETATE [Suspect]

REACTIONS (4)
  - DIZZINESS [None]
  - ELECTROCARDIOGRAM QRS COMPLEX PROLONGED [None]
  - PACEMAKER COMPLICATION [None]
  - SYNCOPE [None]
